FAERS Safety Report 21356964 (Version 2)
Quarter: 2022Q3

REPORT INFORMATION
  Report Type: Report from Study
  Country: FI (occurrence: FI)
  Receive Date: 20220921
  Receipt Date: 20220930
  Transmission Date: 20221026
  Serious: Yes (Other)
  Sender: FDA-Public Use
  Company Number: FI-TEVA-2022-FI-2073496

PATIENT
  Age: 63 Year
  Sex: Female

DRUGS (14)
  1. FREMANEZUMAB [Suspect]
     Active Substance: FREMANEZUMAB
     Indication: Product used for unknown indication
     Dosage: 675 QUARTERLY, PREFILLED SYRINGE, INJECTION LOCATION RIGHT UPPER ARM
     Route: 065
     Dates: start: 20201123
  2. FREMANEZUMAB [Suspect]
     Active Substance: FREMANEZUMAB
     Dosage: 675 QUARTERLY, AUTOINJECTOR, INJECTION LOCATION LEFT THIGH
     Route: 065
     Dates: start: 20210824
  3. SUMATRIPTAN SUCCINATE [Concomitant]
     Active Substance: SUMATRIPTAN SUCCINATE
     Indication: Migraine
     Dosage: 100MG PRN, THERAPY START DATE : 03-JUL-2015
     Route: 048
  4. SUMATRIPTAN SUCCINATE [Concomitant]
     Active Substance: SUMATRIPTAN SUCCINATE
     Dosage: 20MG PRN, THERAPY START DATE : 10-MAR-2005
     Route: 045
  5. ATACAND [Concomitant]
     Active Substance: CANDESARTAN CILEXETIL
     Indication: Migraine prophylaxis
     Dosage: 16 MILLIGRAM DAILY; THERAPY START DATE: 10-MAR-2005
     Route: 048
  6. ATACAND [Concomitant]
     Active Substance: CANDESARTAN CILEXETIL
     Indication: Hypertension
  7. BISOPROLOL FUMARATE [Concomitant]
     Active Substance: BISOPROLOL FUMARATE
     Indication: Migraine prophylaxis
     Dosage: 5 MILLIGRAM DAILY; THERAPY START DATE: 04-SEP-2005
     Route: 048
  8. BISOPROLOL FUMARATE [Concomitant]
     Active Substance: BISOPROLOL FUMARATE
     Indication: Hypertension
  9. METFORMIN [Concomitant]
     Active Substance: METFORMIN HYDROCHLORIDE
     Indication: Diabetes mellitus
     Dosage: 1 GRAM DAILY; THERAPY START DATE: 2012
     Route: 048
  10. LEVOTHYROXINE [Concomitant]
     Active Substance: LEVOTHYROXINE
     Indication: Hypothyroidism
     Dosage: 100 MICROGRAM DAILY; THERAPY START DATE: 2013
     Route: 048
  11. Liothyron [Concomitant]
     Indication: Hypothyroidism
     Dosage: 10 MICROGRAM DAILY; THERAPY START DATE: 2013
     Route: 048
  12. ATORVASTATIN [Concomitant]
     Active Substance: ATORVASTATIN
     Indication: Hypercholesterolaemia
     Dosage: 10 MILLIGRAM DAILY; THERAPY START DATE: 23-MAR-2021
     Route: 048
  13. BionNTech-Pfizer Comrinaty [Concomitant]
     Indication: COVID-19 immunisation
     Dosage: 1 DOSE ONCE
     Route: 030
     Dates: start: 20210514, end: 20210514
  14. Astra Zeneca covid-19 vaccine [Concomitant]
     Indication: COVID-19 immunisation
     Dosage: 1 DOSE ONCE
     Route: 030
     Dates: start: 20200218, end: 20200218

REACTIONS (2)
  - Enterovirus infection [Recovered/Resolved]
  - Osteoarthritis [Recovering/Resolving]

NARRATIVE: CASE EVENT DATE: 20220101
